FAERS Safety Report 7787090-3 (Version None)
Quarter: 2011Q3

REPORT INFORMATION
  Report Type: 
  Country: None (occurrence: None)
  Receive Date: 20110929
  Receipt Date: 20110922
  Transmission Date: 20111222
  Serious: Yes (Hospitalization, Other)
  Sender: FDA-Public Use
  Company Number: DE-UCBSA-000430

PATIENT
  Sex: Female
  Weight: 128 kg

DRUGS (13)
  1. FRISIUM [Concomitant]
     Route: 048
     Dates: start: 20090122, end: 20090101
  2. KEPPRA [Concomitant]
     Indication: EPILEPSY
     Route: 048
  3. LAMOTRIGINE [Concomitant]
     Route: 048
     Dates: start: 20090223
  4. PHENYTOIN [Concomitant]
     Indication: EPILEPSY
     Route: 048
  5. ZONEGRAN [Concomitant]
     Indication: EPILEPSY
     Route: 048
     Dates: end: 20090115
  6. VIMPAT [Suspect]
     Route: 048
     Dates: start: 20090125, end: 20090128
  7. LAMOTRIGINE [Concomitant]
     Indication: EPILEPSY
     Route: 048
     Dates: end: 20090222
  8. FRISIUM [Concomitant]
     Indication: EPILEPSY
     Route: 048
  9. PHENOBARBITAL TAB [Concomitant]
     Indication: EPILEPSY
     Route: 048
     Dates: end: 20090120
  10. FRISIUM [Concomitant]
     Route: 048
     Dates: start: 20090223, end: 20090301
  11. PHENOBARBITAL TAB [Concomitant]
     Route: 048
     Dates: start: 20090121, end: 20090302
  12. VIMPAT [Suspect]
     Indication: EPILEPSY
     Route: 048
     Dates: start: 20090120, end: 20090124
  13. VIMPAT [Suspect]
     Route: 048
     Dates: start: 20090129, end: 20090129

REACTIONS (2)
  - SELECTIVE ABORTION [None]
  - PREGNANCY [None]
